FAERS Safety Report 4615415-6 (Version None)
Quarter: 2005Q1

REPORT INFORMATION
  Report Type: 
  Country: None (occurrence: None)
  Receive Date: 20050317
  Receipt Date: 20050308
  Transmission Date: 20050727
  Serious: Yes (Other)
  Sender: FDA-Public Use
  Company Number: 2005002715

PATIENT
  Age: 54 Year
  Sex: Female

DRUGS (16)
  1. LIPITOR [Suspect]
     Indication: ILL-DEFINED DISORDER
  2. INSPRA [Suspect]
     Indication: ILL-DEFINED DISORDER
  3. METOPROLOL TARTRATE [Suspect]
     Indication: ILL-DEFINED DISORDER
  4. INSULIN GLARGINE (INSULIN GLARGINE) [Suspect]
     Indication: ILL-DEFINED DISORDER
  5. INSULIN ASPART (INSULIN ASPART) [Suspect]
     Indication: ILL-DEFINED DISORDER
  6. MAGNESIUM OXIDE (MAGNESIUM OXIDE) [Suspect]
     Indication: ILL-DEFINED DISORDER
  7. COMBIVENT [Concomitant]
  8. ALLOPURINOL [Concomitant]
  9. LEVOSALBUTAMOL (LEVOSALBUTAMOL) [Concomitant]
  10. BENAZEPRIL HCL [Concomitant]
  11. POTASSIUM CHLORIDE [Concomitant]
  12. CLONAZEPAM [Concomitant]
  13. FUROSEMIDE [Concomitant]
  14. METFORMIN HYDROCHLORIDE/ROSIGLITAZONE (METFORMIN HYDROCHLORIDE, ROSIGL [Concomitant]
  15. VENLAFAXINE HCL [Concomitant]
  16. SERETIDE MITE (FLUTICASONE PROPIONATE, SALMETEROL XINAFOATE) [Concomitant]

REACTIONS (3)
  - CARDIAC FAILURE CONGESTIVE [None]
  - DIABETES MELLITUS [None]
  - HYPERTENSION [None]
